FAERS Safety Report 25936804 (Version 1)
Quarter: 2025Q4

REPORT INFORMATION
  Report Type: Spontaneous
  Country: CN (occurrence: CN)
  Receive Date: 20251017
  Receipt Date: 20251017
  Transmission Date: 20260118
  Serious: Yes (Hospitalization)
  Sender: ELI LILLY AND COMPANY
  Company Number: CN-Merck Healthcare KGaA-2025050659

PATIENT
  Age: 43 Year
  Sex: Female
  Weight: 65 kg

DRUGS (5)
  1. ERBITUX [Suspect]
     Active Substance: CETUXIMAB
     Indication: Rectal cancer
     Dosage: 800 MG, UNKNOWN
     Route: 041
     Dates: start: 20250918, end: 20250918
  2. ELOXATIN [Suspect]
     Active Substance: OXALIPLATIN
     Indication: Rectal cancer
     Dosage: UNK UNK, UNKNOWN
     Route: 041
     Dates: start: 20250919, end: 20250919
  3. FLUOROURACIL [Suspect]
     Active Substance: FLUOROURACIL
     Indication: Rectal cancer
     Dosage: UNK UNK, UNKNOWN
     Route: 042
     Dates: start: 20250919, end: 20250919
  4. FLUOROURACIL [Suspect]
     Active Substance: FLUOROURACIL
     Dosage: UNK UNK, UNKNOWN
     Route: 042
     Dates: start: 20250919, end: 20250921
  5. LEUCOVORIN CALCIUM [Concomitant]
     Active Substance: LEUCOVORIN CALCIUM
     Indication: Rectal cancer
     Dosage: UNK UNK, UNKNOWN
     Route: 041
     Dates: start: 20250919, end: 20250919

REACTIONS (1)
  - Myelosuppression [Unknown]

NARRATIVE: CASE EVENT DATE: 20251002
